FAERS Safety Report 7733001-6 (Version None)
Quarter: 2011Q3

REPORT INFORMATION
  Report Type: 
  Country: None (occurrence: None)
  Receive Date: 20110902
  Receipt Date: 20110902
  Transmission Date: 20111222
  Serious: No
  Sender: FDA-Public Use
  Company Number: None

PATIENT
  Age: 80 Year
  Sex: Female
  Weight: 68.2 kg

DRUGS (1)
  1. DICLOXACILLIN [Suspect]
     Indication: CELLULITIS
     Dosage: 250MG 1 CAP 4XDAILY MOUTH
     Route: 048
     Dates: start: 20110715, end: 20110723

REACTIONS (1)
  - RASH PRURITIC [None]
